FAERS Safety Report 18593304 (Version 1)
Quarter: 2020Q4

REPORT INFORMATION
  Report Type: Other
  Country: CA (occurrence: CA)
  Receive Date: 20201209
  Receipt Date: 20201209
  Transmission Date: 20210114
  Serious: Yes (Hospitalization, Other)
  Sender: FDA-Public Use
  Company Number: CA-CELLTRION INC.-2020CA033161

PATIENT

DRUGS (19)
  1. RITUXIMAB (UNKNOWN) [Suspect]
     Active Substance: RITUXIMAB
     Indication: GRANULOMATOSIS WITH POLYANGIITIS
  2. METHYLPREDNISOLONE SODIUM SUCCINATE. [Concomitant]
     Active Substance: METHYLPREDNISOLONE SODIUM SUCCINATE
     Indication: PREMEDICATION
     Dosage: 100.0 MILLIGRAM
     Route: 042
  3. RITUXIMAB (UNKNOWN) [Suspect]
     Active Substance: RITUXIMAB
     Indication: VASCULITIS
     Dosage: 765.0 MILLIGRAM, 1 EVERY 1 WEEKS
     Route: 042
  4. DAPSONE. [Suspect]
     Active Substance: DAPSONE
     Indication: PRODUCT USED FOR UNKNOWN INDICATION
     Route: 065
  5. ACYCLOVIR. [Concomitant]
     Active Substance: ACYCLOVIR
     Indication: PRODUCT USED FOR UNKNOWN INDICATION
  6. NIFEDIPINE. [Concomitant]
     Active Substance: NIFEDIPINE
     Indication: PRODUCT USED FOR UNKNOWN INDICATION
     Route: 065
  7. SEPTRA [Concomitant]
     Active Substance: SULFAMETHOXAZOLE\TRIMETHOPRIM
     Indication: PRODUCT USED FOR UNKNOWN INDICATION
     Dosage: 3 EVERY 1 WEEKS
     Route: 065
  8. AMITRIPTYLINE [Concomitant]
     Active Substance: AMITRIPTYLINE
     Indication: PRODUCT USED FOR UNKNOWN INDICATION
  9. BENADRYL [Concomitant]
     Active Substance: DIPHENHYDRAMINE HYDROCHLORIDE
     Indication: PREMEDICATION
     Dosage: 50.0 MILLIGRAM
     Route: 048
  10. CANDESARTAN. [Concomitant]
     Active Substance: CANDESARTAN
     Indication: BLOOD PRESSURE MEASUREMENT
  11. METOPROLOL. [Concomitant]
     Active Substance: METOPROLOL
     Indication: PRODUCT USED FOR UNKNOWN INDICATION
     Dosage: 50.0 MILLIGRAM
     Route: 065
  12. MINOCYCLINE [Concomitant]
     Active Substance: MINOCYCLINE HYDROCHLORIDE
     Indication: PRODUCT USED FOR UNKNOWN INDICATION
  13. FUROSEMIDE. [Concomitant]
     Active Substance: FUROSEMIDE
     Indication: PRODUCT USED FOR UNKNOWN INDICATION
     Dosage: 20.0 MILLIGRAM
     Route: 065
  14. TYLENOL [Concomitant]
     Active Substance: ACETAMINOPHEN
     Indication: PREMEDICATION
     Dosage: 650.0 MILLIGRAM
     Route: 048
  15. GRAVOL [Concomitant]
     Active Substance: DIMENHYDRINATE
  16. PREDNISONE. [Concomitant]
     Active Substance: PREDNISONE
     Indication: PRODUCT USED FOR UNKNOWN INDICATION
  17. MEPRON [Concomitant]
     Active Substance: ATOVAQUONE
     Indication: PRODUCT USED FOR UNKNOWN INDICATION
  18. MOXIFLOXACIN. [Concomitant]
     Active Substance: MOXIFLOXACIN
     Indication: PRODUCT USED FOR UNKNOWN INDICATION
  19. PANTOPRAZOLE [Concomitant]
     Active Substance: PANTOPRAZOLE
     Indication: PRODUCT USED FOR UNKNOWN INDICATION

REACTIONS (5)
  - Pneumonia [Unknown]
  - Adverse drug reaction [Unknown]
  - Herpes zoster [Unknown]
  - Intentional product misuse [Unknown]
  - Off label use [Unknown]
